FAERS Safety Report 5603203-3 (Version None)
Quarter: 2008Q1

REPORT INFORMATION
  Report Type: 
  Country: None (occurrence: None)
  Receive Date: 20080123
  Receipt Date: 20080110
  Transmission Date: 20080703
  Serious: Yes (Other)
  Sender: FDA-Public Use
  Company Number: 2008000881

PATIENT
  Sex: Female

DRUGS (1)
  1. BENADRYL ALLERGY DYE-FREE (DIPHENHYDRAMINE) [Suspect]
     Indication: HYPERSENSITIVITY
     Dosage: ORAL
     Route: 048
     Dates: start: 20070708, end: 20080110

REACTIONS (1)
  - UNEVALUABLE EVENT [None]
